FAERS Safety Report 9992440 (Version 1)
Quarter: 2014Q1

REPORT INFORMATION
  Report Type: Spontaneous
  Country: FR (occurrence: FR)
  Receive Date: 20140310
  Receipt Date: 20140310
  Transmission Date: 20141002
  Serious: Yes (Hospitalization)
  Sender: FDA-Public Use
  Company Number: FR-GLAXOSMITHKLINE-B0974342A

PATIENT
  Age: 67 Year
  Sex: Male

DRUGS (7)
  1. MALARONE [Suspect]
     Indication: MALARIA
     Route: 048
     Dates: start: 20140213, end: 20140215
  2. ARTESUNATE [Suspect]
     Indication: MALARIA
     Route: 042
     Dates: start: 20140210, end: 20140212
  3. PREZISTA [Concomitant]
     Indication: HIV INFECTION
     Route: 065
  4. NORVIR [Concomitant]
     Indication: HIV INFECTION
     Route: 065
  5. TRUVADA [Concomitant]
     Indication: HIV INFECTION
     Route: 065
  6. ICAZ [Concomitant]
     Route: 065
  7. COKENZEN [Concomitant]
     Route: 065

REACTIONS (1)
  - Haemolytic anaemia [Not Recovered/Not Resolved]
